FAERS Safety Report 6045320-2 (Version None)
Quarter: 2009Q1

REPORT INFORMATION
  Report Type: 
  Country: None (occurrence: None)
  Receive Date: 20090121
  Receipt Date: 20090116
  Transmission Date: 20090719
  Serious: Yes (Death)
  Sender: FDA-Public Use
  Company Number: PHHY2008JP31211

PATIENT
  Sex: Female
  Weight: 33 kg

DRUGS (3)
  1. ICL670A ICL+DISTAB [Suspect]
     Indication: IRON OVERLOAD
     Dosage: 500 MG DAILY
     Route: 048
     Dates: start: 20080708, end: 20080718
  2. ICL670A ICL+DISTAB [Suspect]
     Dosage: 500 MG DAILY
     Route: 048
     Dates: start: 20080807, end: 20080817
  3. THYRADIN S [Suspect]
     Dosage: 200 UG DAILY
     Route: 048
     Dates: start: 20080708, end: 20081120

REACTIONS (11)
  - ANAEMIA [None]
  - BLOOD UREA INCREASED [None]
  - FLANK PAIN [None]
  - HAEMODIALYSIS [None]
  - MYALGIA [None]
  - OEDEMA [None]
  - RENAL FAILURE [None]
  - SWELLING [None]
  - URINE OUTPUT DECREASED [None]
  - VERTIGO [None]
  - WEIGHT INCREASED [None]
